FAERS Safety Report 21406735 (Version 1)
Quarter: 2022Q4

REPORT INFORMATION
  Report Type: Report from Study
  Country: MX (occurrence: MX)
  Receive Date: 20221004
  Receipt Date: 20221004
  Transmission Date: 20230112
  Serious: Yes (Death, Other)
  Sender: FDA-Public Use
  Company Number: MX-NOVARTISPH-NVSC2022MX223322

PATIENT
  Age: 79 Year
  Sex: Male

DRUGS (2)
  1. EXELON [Suspect]
     Active Substance: RIVASTIGMINE TARTRATE
     Indication: Senile dementia
     Dosage: 4.6 MG, QD, (PATCH 5 (CM2), 9 MG RIVASTIGMINE BASE
     Route: 062
     Dates: start: 202102, end: 202103
  2. EXELON [Suspect]
     Active Substance: RIVASTIGMINE TARTRATE
     Dosage: 9.5 MG, QD, (PATCH 10 (CM2), 18 MG RIVASTIGMINE BASE
     Route: 062
     Dates: start: 202103

REACTIONS (2)
  - Cardiopulmonary failure [Fatal]
  - Off label use [Recovered/Resolved]

NARRATIVE: CASE EVENT DATE: 20210201
